FAERS Safety Report 8341133-7 (Version None)
Quarter: 2012Q2

REPORT INFORMATION
  Report Type: 
  Country: None (occurrence: None)
  Receive Date: 20120507
  Receipt Date: 20120423
  Transmission Date: 20120825
  Serious: Yes (Death, Other)
  Sender: FDA-Public Use
  Company Number: IN-RANBAXY-2012RR-55808

PATIENT
  Age: 28 Year
  Sex: Female

DRUGS (3)
  1. CEFUROXIME [Suspect]
     Indication: UPPER RESPIRATORY TRACT INFECTION
     Dosage: 250 MG, TID
     Route: 065
  2. CETIRIZINE HCL [Concomitant]
     Indication: UPPER RESPIRATORY TRACT INFECTION
     Route: 065
  3. AZITHROMYCIN [Concomitant]
     Indication: UPPER RESPIRATORY TRACT INFECTION
     Dosage: UNK
     Route: 065

REACTIONS (1)
  - PANIC ATTACK [None]
